FAERS Safety Report 14239523 (Version 1)
Quarter: 2017Q4

REPORT INFORMATION
  Report Type: Spontaneous
  Country: US (occurrence: None)
  Receive Date: 20171129
  Receipt Date: 20171129
  Transmission Date: 20180321
  Serious: Yes (Life-Threatening)
  Sender: FDA-Public Use
  Company Number: None

PATIENT
  Age: 57 Year
  Sex: Male

DRUGS (2)
  1. IBUPROFEN. [Suspect]
     Active Substance: IBUPROFEN
     Indication: CORONARY ARTERIAL STENT INSERTION
     Route: 048
     Dates: start: 20160421, end: 20170808
  2. ASPIRIN. [Suspect]
     Active Substance: ASPIRIN
     Indication: CORONARY ARTERIAL STENT INSERTION
     Route: 048
     Dates: start: 20111115, end: 20170808

REACTIONS (11)
  - Penile blister [None]
  - Urticaria [None]
  - Arthropod bite [None]
  - Hypoaesthesia oral [None]
  - Pruritus [None]
  - Erythema [None]
  - Lip swelling [None]
  - Anaphylactic reaction [None]
  - Angioedema [None]
  - Swelling [None]
  - Pruritus genital [None]

NARRATIVE: CASE EVENT DATE: 20170806
